FAERS Safety Report 11516153 (Version 5)
Quarter: 2016Q1

REPORT INFORMATION
  Report Type: Report from Study
  Country: US (occurrence: US)
  Receive Date: 20150917
  Receipt Date: 20160129
  Transmission Date: 20160525
  Serious: No
  Sender: FDA-Public Use
  Company Number: US-AMGEN-USASP2015095720

PATIENT
  Age: 55 Year
  Sex: Female

DRUGS (1)
  1. ENBREL [Suspect]
     Active Substance: ETANERCEPT
     Indication: RHEUMATOID ARTHRITIS
     Dosage: UNK, ONCE A WEEK
     Route: 065
     Dates: start: 2015, end: 2015

REACTIONS (7)
  - Injection site rash [Recovered/Resolved]
  - Urticaria [Unknown]
  - Erythema [Unknown]
  - Rash erythematous [Unknown]
  - Pyrexia [Unknown]
  - Injection site erythema [Unknown]
  - Injection site reaction [Unknown]

NARRATIVE: CASE EVENT DATE: 2015
